FAERS Safety Report 6151223-5 (Version None)
Quarter: 2009Q2

REPORT INFORMATION
  Report Type: 
  Country: None (occurrence: None)
  Receive Date: 20090410
  Receipt Date: 20090403
  Transmission Date: 20091009
  Serious: Yes (Other)
  Sender: FDA-Public Use
  Company Number: US-CELGENEUS-163-20785-08071334

PATIENT
  Sex: Female

DRUGS (3)
  1. THALOMID [Suspect]
     Indication: MULTIPLE MYELOMA
     Route: 048
     Dates: start: 20080401, end: 20080501
  2. THALOMID [Suspect]
     Route: 048
     Dates: start: 20050401, end: 20060801
  3. THALOMID [Suspect]
     Dosage: 200MG, 50MG
     Route: 048
     Dates: start: 20020301, end: 20041201

REACTIONS (2)
  - ADVERSE DRUG REACTION [None]
  - HYPOAESTHESIA [None]
